FAERS Safety Report 25638279 (Version 1)
Quarter: 2025Q3

REPORT INFORMATION
  Report Type: Report from Study
  Country: CA (occurrence: CA)
  Receive Date: 20250804
  Receipt Date: 20250804
  Transmission Date: 20251021
  Serious: Yes (Other)
  Sender: CELLTRION
  Company Number: CA-CELLTRION INC.-2025CA023900

PATIENT

DRUGS (1)
  1. INFLIXIMAB-DYYB [Suspect]
     Active Substance: INFLIXIMAB-DYYB
     Indication: Colitis ulcerative
     Route: 042
     Dates: start: 20250714

REACTIONS (4)
  - Malaise [Unknown]
  - Arthralgia [Unknown]
  - Treatment delayed [Unknown]
  - Overdose [Unknown]

NARRATIVE: CASE EVENT DATE: 20250714
